FAERS Safety Report 8272911-0 (Version None)
Quarter: 2012Q2

REPORT INFORMATION
  Report Type: 
  Country: None (occurrence: None)
  Receive Date: 20120409
  Receipt Date: 20120409
  Transmission Date: 20120825
  Serious: Yes (Life-Threatening, Hospitalization, Disabling, Other)
  Sender: FDA-Public Use
  Company Number: None

PATIENT
  Sex: Female
  Weight: 53.5 kg

DRUGS (1)
  1. DEPAKOTE [Suspect]
     Indication: AUTISM
     Dates: start: 20101101, end: 20101201

REACTIONS (1)
  - INTENTIONAL SELF-INJURY [None]
